FAERS Safety Report 5115830-0 (Version None)
Quarter: 2006Q3

REPORT INFORMATION
  Report Type: 
  Country: None (occurrence: None)
  Receive Date: 20060927
  Receipt Date: 20060920
  Transmission Date: 20061208
  Serious: Yes (Hospitalization)
  Sender: FDA-Public Use
  Company Number: JP-MERCK-0609USA05603

PATIENT
  Age: 73 Year
  Sex: Male

DRUGS (10)
  1. PEPCID [Suspect]
     Indication: GASTRIC ULCER HAEMORRHAGE
     Route: 051
     Dates: start: 20060718, end: 20060724
  2. PEPCID RPD [Suspect]
     Indication: GASTRIC ULCER HAEMORRHAGE
     Route: 048
     Dates: start: 20060822, end: 20060907
  3. PANALDINE [Suspect]
     Route: 048
     Dates: start: 20060726, end: 20060727
  4. PAZUCROSS [Suspect]
     Route: 051
     Dates: start: 20060806, end: 20060814
  5. ARTIST [Suspect]
     Route: 048
     Dates: start: 20060726, end: 20060823
  6. ASPIRIN [Suspect]
     Route: 048
     Dates: start: 20060726, end: 20060806
  7. VASOTEC [Suspect]
     Route: 048
     Dates: start: 20060726, end: 20060822
  8. SIGMART [Suspect]
     Route: 048
     Dates: start: 20060726, end: 20060823
  9. LANSOPRAZOLE [Suspect]
     Route: 048
     Dates: start: 20060807, end: 20060821
  10. PEPCID [Suspect]
     Route: 048
     Dates: start: 20060726, end: 20060806

REACTIONS (1)
  - LIVER DISORDER [None]
